FAERS Safety Report 20591018 (Version 1)
Quarter: 2022Q1

REPORT INFORMATION
  Report Type: Spontaneous
  Country: US (occurrence: US)
  Receive Date: 20220314
  Receipt Date: 20220314
  Transmission Date: 20220423
  Serious: No
  Sender: FDA-Public Use
  Company Number: US-JNJFOC-20220313746

PATIENT
  Age: 6 Decade
  Sex: Male

DRUGS (1)
  1. MENS ROGAINE EXTRA STRENGTH [Suspect]
     Active Substance: MINOXIDIL
     Indication: Alopecia
     Dosage: FEW DROPS ON BALD SPOT?PRODUCT START DATE: 7 YEARS AGO
     Route: 065

REACTIONS (1)
  - Incorrect dose administered [Unknown]
